FAERS Safety Report 8576697-1 (Version None)
Quarter: 2012Q3

REPORT INFORMATION
  Report Type: 
  Country: None (occurrence: None)
  Receive Date: 20120807
  Receipt Date: 20120731
  Transmission Date: 20120928
  Serious: Yes (Hospitalization)
  Sender: FDA-Public Use
  Company Number: US-GLAXOSMITHKLINE-A0983418A

PATIENT
  Sex: Female

DRUGS (2)
  1. COREG [Suspect]
     Indication: BLOOD PRESSURE
  2. SPIRONOLACTONE [Suspect]
     Indication: BLOOD PRESSURE

REACTIONS (2)
  - PRURITUS [None]
  - FALL [None]
